FAERS Safety Report 24753044 (Version 2)
Quarter: 2024Q4

REPORT INFORMATION
  Report Type: Spontaneous
  Country: US (occurrence: US)
  Receive Date: 20241219
  Receipt Date: 20241220
  Transmission Date: 20250114
  Serious: Yes (Other)
  Sender: MYLAN
  Company Number: US-MYLANLABS-2024M1112068

PATIENT
  Age: 9 Year
  Sex: Male

DRUGS (6)
  1. DEXAMETHASONE [Suspect]
     Active Substance: DEXAMETHASONE
     Indication: Cerebral disorder
     Dosage: 10 MILLIGRAM, QD, RECEIVED DAILY FOR A DURATION OF 5 DAYS?ON THE WEEK OF BEVACIZUMAB INFUSION; ONE C
     Route: 048
  2. DEXAMETHASONE [Suspect]
     Active Substance: DEXAMETHASONE
     Indication: Adrenoleukodystrophy
  3. BEVACIZUMAB [Suspect]
     Active Substance: BEVACIZUMAB
     Indication: Cerebral disorder
     Dosage: 10 MILLIGRAM/SQ. METER, CYCLE,RECEIVED EVERY 2 WEEKS; ONE CYCLE
     Route: 042
  4. BEVACIZUMAB [Suspect]
     Active Substance: BEVACIZUMAB
     Indication: Adrenoleukodystrophy
  5. RUXOLITINIB [Suspect]
     Active Substance: RUXOLITINIB
     Indication: Cerebral disorder
     Dosage: 10 MILLIGRAM, CYCLE, RECEIVED DAILY UNTIL BEVACIZUMAB INFUSION WAS CONTINUED; ONE CYCLE
     Route: 048
  6. RUXOLITINIB [Suspect]
     Active Substance: RUXOLITINIB
     Indication: Adrenoleukodystrophy

REACTIONS (2)
  - Drug ineffective for unapproved indication [Unknown]
  - Off label use [Unknown]
